FAERS Safety Report 5326537-9 (Version None)
Quarter: 2007Q2

REPORT INFORMATION
  Report Type: 
  Country: None (occurrence: None)
  Receive Date: 20070510
  Receipt Date: 20070424
  Transmission Date: 20071010
  Serious: Yes (Life-Threatening, Hospitalization)
  Sender: FDA-Public Use
  Company Number: DSA_29851_2007

PATIENT
  Age: 59 Year
  Sex: Female

DRUGS (12)
  1. DILTIAZEM HYDROCHLORIDE [Suspect]
     Dosage: (4800 MG TOTAL ORAL)
     Route: 048
  2. VALIUM [Suspect]
     Indication: OVERDOSE
     Dosage: 50 MG TOTAL ORAL
     Route: 048
  3. CHARCOAL, ACTIVATED [Concomitant]
  4. CALCIUM CHLORIDE [Concomitant]
  5. ATROPINE [Concomitant]
  6. GLUCAGON [Concomitant]
  7. INSULIN [Concomitant]
  8. VALPRESSIN [Concomitant]
  9. VASOPRESIN [Concomitant]
  10. DOPAMINE HCL [Concomitant]
  11. NOREPINEPHRINE BITARTRATE [Concomitant]
  12. PHENYLEPHRINE [Concomitant]

REACTIONS (19)
  - ACIDOSIS [None]
  - BRADYCARDIA [None]
  - CARDIAC ARREST [None]
  - DEEP VEIN THROMBOSIS [None]
  - DRUG SCREEN POSITIVE [None]
  - GASTRIC HAEMORRHAGE [None]
  - HYPOTENSION [None]
  - LOSS OF CONSCIOUSNESS [None]
  - MENTAL STATUS CHANGES [None]
  - NAUSEA [None]
  - NEUROPATHY PERIPHERAL [None]
  - NODAL RHYTHM [None]
  - OLIGURIA [None]
  - PANCREATITIS [None]
  - PNEUMONIA ASPIRATION [None]
  - RENAL FAILURE [None]
  - RESPIRATORY DISTRESS [None]
  - VENTRICULAR FIBRILLATION [None]
  - VOMITING [None]
